FAERS Safety Report 8152105 (Version 2)
Quarter: 2012Q4

REPORT INFORMATION
  Report Type: 
  Country: US (occurrence: US)
  Receive Date: 20110922
  Receipt Date: 20121130
  Transmission Date: 20130627
  Serious: No
  Sender: FDA-Public Use
  Company Number: US-ASTRAZENECA-2010SE51948

PATIENT
  Age: 66 Year
  Sex: Female
  Weight: 86.2 kg

DRUGS (4)
  1. SEROQUEL XR [Suspect]
     Indication: DEPRESSION
     Route: 048
     Dates: start: 2008
  2. SEROQUEL XR [Suspect]
     Indication: ANXIETY
     Route: 048
     Dates: start: 2008
  3. SEROQUEL XR [Suspect]
     Indication: DEPRESSION
     Route: 048
     Dates: start: 1999, end: 2000
  4. SEROQUEL XR [Suspect]
     Indication: ANXIETY
     Route: 048
     Dates: start: 1999, end: 2000

REACTIONS (7)
  - Nervousness [Unknown]
  - Tension [Unknown]
  - Thinking abnormal [Recovered/Resolved]
  - Mental disorder [Unknown]
  - Feeling abnormal [Recovered/Resolved]
  - Off label use [Unknown]
  - Off label use [Recovered/Resolved]
